FAERS Safety Report 4302247-1 (Version None)
Quarter: 2004Q1

REPORT INFORMATION
  Report Type: 
  Country: None (occurrence: None)
  Receive Date: 20040220
  Receipt Date: 20040205
  Transmission Date: 20041129
  Serious: Yes (Life-Threatening, Hospitalization)
  Sender: FDA-Public Use
  Company Number: 8005375

PATIENT
  Age: 27 Year
  Sex: Male
  Weight: 90 kg

DRUGS (2)
  1. KEPPRA [Suspect]
     Indication: EPILEPSY
     Dosage: 1000 MG PO
     Route: 048
  2. AVELOX [Suspect]
     Indication: BRONCHITIS
     Dosage: PO
     Route: 048

REACTIONS (2)
  - BRONCHITIS [None]
  - STATUS EPILEPTICUS [None]
